FAERS Safety Report 18065315 (Version 11)
Quarter: 2021Q2

REPORT INFORMATION
  Report Type: Report from Study
  Country: CA (occurrence: CA)
  Receive Date: 20200724
  Receipt Date: 20210517
  Transmission Date: 20210717
  Serious: Yes (Hospitalization)
  Sender: FDA-Public Use
  Company Number: CA-ASTELLAS-2020US024371

PATIENT
  Age: 72 Year
  Sex: Male

DRUGS (5)
  1. ASP2215 [Suspect]
     Active Substance: GILTERITINIB
     Route: 048
     Dates: start: 202007
  2. ASP2215 [Suspect]
     Active Substance: GILTERITINIB
     Route: 048
     Dates: end: 20210208
  3. ASP2215 [Suspect]
     Active Substance: GILTERITINIB
     Route: 048
     Dates: end: 202103
  4. ASP2215 [Suspect]
     Active Substance: GILTERITINIB
     Indication: ACUTE MYELOID LEUKAEMIA
     Route: 048
     Dates: start: 20200714, end: 202007
  5. ASP2215 [Suspect]
     Active Substance: GILTERITINIB
     Route: 048
     Dates: start: 20210401, end: 20210429

REACTIONS (9)
  - Chest pain [Unknown]
  - Skin irritation [Unknown]
  - Joint stiffness [Unknown]
  - Drug ineffective [Unknown]
  - Periorbital swelling [Unknown]
  - Bacterial infection [Unknown]
  - Dizziness [Unknown]
  - Arthralgia [Unknown]
  - Prescribed overdose [Unknown]

NARRATIVE: CASE EVENT DATE: 20200714
